FAERS Safety Report 13517125 (Version 1)
Quarter: 2017Q2

REPORT INFORMATION
  Report Type: Spontaneous
  Country: US (occurrence: US)
  Receive Date: 20170505
  Receipt Date: 20170505
  Transmission Date: 20170830
  Serious: Yes (Hospitalization)
  Sender: FDA-Public Use
  Company Number: None

PATIENT
  Age: 76 Year
  Sex: Female
  Weight: 90.1 kg

DRUGS (6)
  1. NAPROXEN. [Suspect]
     Active Substance: NAPROXEN
     Indication: ARTHRITIS
     Route: 048
  2. VERAPAMIL [Concomitant]
     Active Substance: VERAPAMIL HYDROCHLORIDE
  3. VITAMIN D [Concomitant]
     Active Substance: CHOLECALCIFEROL
  4. ASPIRIN. [Suspect]
     Active Substance: ASPIRIN
     Indication: ARTHRITIS
     Dosage: DATES OF USE - CHRONIC
     Route: 048
  5. LOVASTATIN. [Suspect]
     Active Substance: LOVASTATIN
  6. MVI [Concomitant]
     Active Substance: VITAMINS

REACTIONS (3)
  - Anaemia [None]
  - Gastric ulcer [None]
  - Upper gastrointestinal haemorrhage [None]

NARRATIVE: CASE EVENT DATE: 20170104
